FAERS Safety Report 9975178 (Version 1)
Quarter: 2014Q1

REPORT INFORMATION
  Report Type: Report from Study
  Country: US (occurrence: US)
  Receive Date: 20140306
  Receipt Date: 20140306
  Transmission Date: 20141002
  Serious: No
  Sender: FDA-Public Use
  Company Number: US-ABBVIE-13P-163-1161436-00

PATIENT
  Sex: Male

DRUGS (3)
  1. HUMIRA [Suspect]
     Indication: CROHN^S DISEASE
     Dates: start: 20110811, end: 2012
  2. HUMIRA [Suspect]
     Dates: start: 2012
  3. BUDESONIDE [Concomitant]
     Indication: STEROID THERAPY
     Dates: start: 201212

REACTIONS (4)
  - Colitis [Not Recovered/Not Resolved]
  - Diarrhoea [Not Recovered/Not Resolved]
  - Discomfort [Not Recovered/Not Resolved]
  - Weight fluctuation [Not Recovered/Not Resolved]
